FAERS Safety Report 13001416 (Version 5)
Quarter: 2017Q4

REPORT INFORMATION
  Report Type: Report from Study
  Country: US (occurrence: US)
  Receive Date: 20161206
  Receipt Date: 20171018
  Transmission Date: 20180320
  Serious: Yes (Hospitalization, Other)
  Sender: FDA-Public Use
  Company Number: PHHO2014US020787

PATIENT
  Age: 68 Year
  Sex: Male
  Weight: 57.7 kg

DRUGS (7)
  1. GSK2118436 [Suspect]
     Active Substance: DABRAFENIB
     Dosage: 100 UNK, UNK
     Route: 048
     Dates: start: 20140711
  2. ZOFRAN [Concomitant]
     Active Substance: ONDANSETRON HYDROCHLORIDE
     Indication: PROPHYLAXIS OF NAUSEA AND VOMITING
     Dosage: 8 MG, PRN
     Route: 048
     Dates: start: 20140606, end: 20140912
  3. GSK2118436 [Suspect]
     Active Substance: DABRAFENIB
     Indication: COLORECTAL CANCER
     Dosage: 150 MG, BID
     Route: 048
     Dates: start: 20140606
  4. GSK1120212 [Suspect]
     Active Substance: TRAMETINIB
     Dosage: 1.5 UNK, UNK
     Route: 048
     Dates: start: 20140711
  5. GSK1120212 [Suspect]
     Active Substance: TRAMETINIB
     Indication: COLORECTAL CANCER
     Dosage: 2 MG, QD
     Route: 048
     Dates: start: 20140606
  6. PANITUMUMAB [Suspect]
     Active Substance: PANITUMUMAB
     Indication: COLORECTAL CANCER
     Dosage: 6 MG/KG, CYCLIC
     Route: 042
     Dates: start: 20140606
  7. PANITUMUMAB [Suspect]
     Active Substance: PANITUMUMAB
     Dosage: 4.8 MG/KG, CYCLIC
     Route: 042
     Dates: start: 20140711

REACTIONS (2)
  - Hyponatraemia [Recovered/Resolved]
  - Delirium [Recovered/Resolved]

NARRATIVE: CASE EVENT DATE: 20140620
